FAERS Safety Report 13593524 (Version 1)
Quarter: 2017Q2

REPORT INFORMATION
  Report Type: Spontaneous
  Country: US (occurrence: US)
  Receive Date: 20170530
  Receipt Date: 20170530
  Transmission Date: 20170830
  Serious: No
  Sender: FDA-Public Use
  Company Number: US-TEVA-731523ACC

PATIENT
  Sex: Female
  Weight: 46.76 kg

DRUGS (1)
  1. CLOPIDOGREL TABLETS, USP [Suspect]
     Active Substance: CLOPIDOGREL BISULFATE

REACTIONS (2)
  - Decreased appetite [Unknown]
  - Weight decreased [Unknown]
